FAERS Safety Report 5099668-9 (Version None)
Quarter: 2006Q3

REPORT INFORMATION
  Report Type: 
  Country: None (occurrence: None)
  Receive Date: 20060908
  Receipt Date: 20060824
  Transmission Date: 20061208
  Serious: Yes (Other)
  Sender: FDA-Public Use
  Company Number: PHBS2006BR13035

PATIENT
  Age: 52 Year
  Sex: Female
  Weight: 68 kg

DRUGS (4)
  1. ZELMAC [Suspect]
     Indication: IRRITABLE BOWEL SYNDROME
     Dosage: 6 MG, BID
     Route: 048
  2. AMITRIPTYLINE HCL [Concomitant]
     Indication: MIGRAINE
     Dosage: UNK, QD
     Route: 048
     Dates: start: 20060101
  3. NOCTAL [Concomitant]
     Indication: SLEEP DISORDER
     Dosage: UNK, QD
     Route: 048
     Dates: start: 20060601
  4. AROMASIN [Suspect]
     Indication: CHEMOTHERAPY

REACTIONS (10)
  - ABDOMINAL DISTENSION [None]
  - COLONOSCOPY [None]
  - CONSTIPATION [None]
  - DRUG INTERACTION [None]
  - DYSPEPSIA [None]
  - MALAISE [None]
  - NAUSEA [None]
  - POLYP [None]
  - POLYPECTOMY [None]
  - RECTAL HAEMORRHAGE [None]
